FAERS Safety Report 11004118 (Version 2)
Quarter: 2022Q3

REPORT INFORMATION
  Report Type: Report from Study
  Country: US (occurrence: US)
  Receive Date: 20150409
  Receipt Date: 20220804
  Transmission Date: 20221027
  Serious: Yes (Hospitalization, Other)
  Sender: FDA-Public Use
  Company Number: US-BRISTOL-MYERS SQUIBB COMPANY-BMS-2015-020584

PATIENT
  Age: 61 Year
  Sex: Male
  Weight: 84.6 kg

DRUGS (17)
  1. DASATINIB [Suspect]
     Active Substance: DASATINIB
     Indication: Pancreatic carcinoma metastatic
     Dosage: 150 MG, QD
     Route: 048
     Dates: start: 20150313, end: 20150414
  2. OXALIPLATIN [Suspect]
     Active Substance: OXALIPLATIN
     Indication: Pancreatic carcinoma metastatic
     Dosage: 85 MG/M2, Q2WK
     Route: 042
     Dates: start: 20150313, end: 20150402
  3. FLUOROURACIL [Suspect]
     Active Substance: FLUOROURACIL
     Indication: Pancreatic carcinoma metastatic
     Dosage: 400 MG/M2, Q2WK
     Route: 042
     Dates: start: 20150313, end: 20150402
  4. FLUOROURACIL [Suspect]
     Active Substance: FLUOROURACIL
     Route: 042
  5. LEUCOVORIN CALCIUM [Suspect]
     Active Substance: LEUCOVORIN CALCIUM
     Indication: Pancreatic carcinoma metastatic
     Dosage: 400 MG/M2, Q2WK
     Route: 042
     Dates: start: 20150313, end: 20150402
  6. APREPITANT [Concomitant]
     Active Substance: APREPITANT
     Indication: Product used for unknown indication
     Route: 048
  7. APREPITANT [Concomitant]
     Active Substance: APREPITANT
     Dosage: APREPITANT 80 + 125 MG -125 MG BY MOUTH IN THE AM OF THE FIRST DAY OF CHEMO THEN 80 MG IN THE AM OF
     Route: 065
  8. BACLOFEN [Concomitant]
     Active Substance: BACLOFEN
     Indication: Hiccups
     Route: 048
  9. DEXAMETHASONE [Concomitant]
     Active Substance: DEXAMETHASONE
     Indication: Product used for unknown indication
     Dosage: TAKE TWO TABLETS PO ON DAYS 2 AND 3 AFTER EACH CHEMOTHERAPY. REPEAT 2 WEEKS WITH CHEMOTHERAPY
     Route: 048
  10. ENOXAPARIN [Concomitant]
     Active Substance: ENOXAPARIN
     Indication: Product used for unknown indication
     Dosage: 80 MG /0.8 ML - INJECT 0.8 MLS INTO THE SKIN 2 TIMES DAILY
     Route: 065
  11. LOPERAMIDE [Concomitant]
     Active Substance: LOPERAMIDE
     Indication: Diarrhoea
     Dosage: LOPERAMIDE 2 MG -TAKE ONE TABLET EVERY 2 TO 3 HRS AS NEEDED
     Route: 065
  12. MEGESTROL [Concomitant]
     Active Substance: MEGESTROL
     Indication: Product used for unknown indication
     Dosage: 625 MG/5ML -TAKE 5 MLS BY MOUTH DAILY
     Route: 048
  13. OXYCODONE [Concomitant]
     Active Substance: OXYCODONE
     Indication: Product used for unknown indication
     Dosage: 10 MG - TAKE 10 MG BY MOUTH EVERY 4 HOURS AS NEEDED
     Route: 048
  14. PROCHLORPERAZINE [Concomitant]
     Active Substance: PROCHLORPERAZINE
     Indication: Product used for unknown indication
     Dosage: 10 MG - TAKE 10 MG BY MOUTH EVERY 4 HOURS AS NEEDED
     Route: 048
  15. PROMETHAZINE [Concomitant]
     Active Substance: PROMETHAZINE HYDROCHLORIDE
     Indication: Product used for unknown indication
     Dosage: PROMETHAZINE 25 MG SUPPOSITORY ? PLACE RECTALLY EVERY 6 HOURS
     Route: 054
  16. ACETAMINOPHEN\HYDROCODONE [Concomitant]
     Active Substance: ACETAMINOPHEN\HYDROCODONE
     Indication: Product used for unknown indication
     Dosage: HYDROCODONE-ACETAMINOPHEN 5- 325 MG PER TABLET - TAKE 1 TABLET BY MOUTH EVERY 6 HOURS AS NEEDED FOR
     Route: 048
  17. MORPHINE [Concomitant]
     Active Substance: MORPHINE
     Indication: Product used for unknown indication
     Route: 048

REACTIONS (4)
  - Subdural haematoma [Unknown]
  - Hydrocephalus [Unknown]
  - Jugular vein thrombosis [Unknown]
  - Brain herniation [Unknown]

NARRATIVE: CASE EVENT DATE: 20150415
